FAERS Safety Report 10767341 (Version 1)
Quarter: 2015Q1

REPORT INFORMATION
  Report Type: Spontaneous
  Country: US (occurrence: US)
  Receive Date: 20150205
  Receipt Date: 20150205
  Transmission Date: 20150721
  Serious: No
  Sender: FDA-Public Use
  Company Number: US-GALDERMA-US14001705

PATIENT
  Sex: Female
  Weight: 78 kg

DRUGS (5)
  1. CLEAN AND CLEAR [Concomitant]
  2. EPIDUO [Suspect]
     Active Substance: ADAPALENE\BENZOYL PEROXIDE
     Indication: ACNE
     Route: 061
     Dates: start: 20140317
  3. CETAPHIL FACE WASH [Concomitant]
     Indication: THERAPEUTIC SKIN CARE TOPICAL
     Route: 061
  4. NOXZEMA [Concomitant]
     Active Substance: SALICYLIC ACID
  5. MAYBELLINE [Concomitant]

REACTIONS (1)
  - Drug ineffective [Not Recovered/Not Resolved]
